FAERS Safety Report 4854753-9 (Version None)
Quarter: 2005Q4

REPORT INFORMATION
  Report Type: 
  Country: None (occurrence: None)
  Receive Date: 20051215
  Receipt Date: 20051122
  Transmission Date: 20060501
  Serious: Yes (Disabling)
  Sender: FDA-Public Use
  Company Number: FR-GLAXOSMITHKLINE-B0401322A

PATIENT
  Age: 1 Day
  Sex: Male

DRUGS (4)
  1. DEROXAT [Suspect]
     Dosage: 60MG PER DAY
     Dates: end: 20050127
  2. LEXOMIL [Suspect]
     Dosage: 6MG PER DAY
  3. TERCIAN [Suspect]
     Dosage: 12.5MG PER DAY
     Dates: end: 20050127
  4. LOXAPAC [Suspect]
     Dosage: 30DROP PER DAY
     Dates: end: 20050127

REACTIONS (5)
  - CONGENITAL GENITOURINARY ABNORMALITY [None]
  - CRYPTORCHISM [None]
  - DRUG EXPOSURE DURING PREGNANCY [None]
  - RENAL CYST [None]
  - RENAL DYSPLASIA [None]
